FAERS Safety Report 15436689 (Version 1)
Quarter: 2018Q3

REPORT INFORMATION
  Report Type: Spontaneous
  Country: US (occurrence: US)
  Receive Date: 20180927
  Receipt Date: 20180927
  Transmission Date: 20181010
  Serious: No
  Sender: FDA-Public Use
  Company Number: US-PFIZER INC-2018390257

PATIENT
  Age: 67 Year
  Sex: Female
  Weight: 82 kg

DRUGS (4)
  1. IBRANCE [Suspect]
     Active Substance: PALBOCICLIB
     Dosage: 75 MG, CYCLIC (ONCE A DAY)
     Route: 048
     Dates: end: 201809
  2. IBRANCE [Suspect]
     Active Substance: PALBOCICLIB
     Indication: BREAST CANCER METASTATIC
     Dosage: 100 MG, CYCLIC
  3. FASLODEX [Concomitant]
     Active Substance: FULVESTRANT
     Dosage: UNK
  4. DULOXETINE. [Concomitant]
     Active Substance: DULOXETINE
     Indication: NEUROPATHY PERIPHERAL
     Dosage: 30 MG, 1X/DAY (2 CAPSULES)

REACTIONS (14)
  - Pain [Unknown]
  - Musculoskeletal chest pain [Unknown]
  - Neuralgia [Unknown]
  - Back pain [Unknown]
  - Full blood count decreased [Unknown]
  - Muscle spasms [Unknown]
  - Sneezing [Unknown]
  - Tremor [Unknown]
  - Headache [Unknown]
  - Paranasal sinus discomfort [Unknown]
  - Nausea [Unknown]
  - Fatigue [Unknown]
  - Arthralgia [Unknown]
  - Infection [Unknown]

NARRATIVE: CASE EVENT DATE: 20180916
